FAERS Safety Report 9929553 (Version 1)
Quarter: 2014Q1

REPORT INFORMATION
  Report Type: Spontaneous
  Country: US (occurrence: US)
  Receive Date: 20140227
  Receipt Date: 20140227
  Transmission Date: 20141002
  Serious: Yes (Other)
  Sender: FDA-Public Use
  Company Number: US-ASTRAZENECA-2014SE12731

PATIENT
  Age: 74 Year
  Sex: Female
  Weight: 64.4 kg

DRUGS (6)
  1. ATENOLOL [Suspect]
     Indication: SUPRAVENTRICULAR TACHYCARDIA
     Route: 048
     Dates: end: 20140121
  2. TOPROL-XL [Suspect]
     Indication: SUPRAVENTRICULAR TACHYCARDIA
     Route: 048
     Dates: start: 1999
  3. TOPROL-XL [Suspect]
     Indication: SUPRAVENTRICULAR TACHYCARDIA
     Dosage: GENERIC
     Route: 048
  4. FLECANIDE [Concomitant]
     Indication: SUPRAVENTRICULAR TACHYCARDIA
  5. FISH OIL [Concomitant]
     Indication: CARDIAC DISORDER
     Dosage: BID
  6. MULTIVITAMIN [Concomitant]
     Dosage: DAILY

REACTIONS (6)
  - Supraventricular tachycardia [Unknown]
  - Tachycardia [Unknown]
  - Hypertension [Unknown]
  - Drug ineffective [Unknown]
  - Intentional drug misuse [Unknown]
  - Off label use [Unknown]
